FAERS Safety Report 18901796 (Version 5)
Quarter: 2021Q2

REPORT INFORMATION
  Report Type: Report from Study
  Country: US (occurrence: US)
  Receive Date: 20210216
  Receipt Date: 20210628
  Transmission Date: 20210717
  Serious: No
  Sender: FDA-Public Use
  Company Number: NVSC2021US035262

PATIENT
  Sex: Female
  Weight: 77 kg

DRUGS (3)
  1. BEOVU [Suspect]
     Active Substance: BROLUCIZUMAB-DBLL
     Dosage: UNK
     Route: 047
     Dates: start: 20201221
  2. PRESERVISION [Concomitant]
     Active Substance: MINERALS\VITAMINS
     Indication: PRODUCT USED FOR UNKNOWN INDICATION
     Dosage: UNK
     Route: 065
  3. BEOVU [Suspect]
     Active Substance: BROLUCIZUMAB-DBLL
     Indication: NEOVASCULAR AGE-RELATED MACULAR DEGENERATION
     Dosage: UNK
     Route: 047
     Dates: start: 20201210

REACTIONS (10)
  - Arthritis [Unknown]
  - Eye pain [Unknown]
  - Blood pressure increased [Unknown]
  - Vitreous floaters [Recovered/Resolved with Sequelae]
  - Swelling face [Unknown]
  - Blood cholesterol increased [Unknown]
  - Periorbital swelling [Unknown]
  - Eye irritation [Unknown]
  - Visual impairment [Unknown]
  - Ocular hyperaemia [Unknown]
